FAERS Safety Report 8691705 (Version 4)
Quarter: 2013Q3

REPORT INFORMATION
  Report Type: Report from Study
  Country: US (occurrence: US)
  Receive Date: 20120730
  Receipt Date: 20130731
  Transmission Date: 20140515
  Serious: Yes (Hospitalization, Other)
  Sender: FDA-Public Use
  Company Number: US-ROCHE-1048063

PATIENT
  Age: 50 Year
  Sex: Female
  Weight: 72.2 kg

DRUGS (20)
  1. DILAUDID [Concomitant]
     Indication: PAIN
     Route: 065
     Dates: start: 20110228, end: 20120321
  2. VITAMIN B6 [Concomitant]
     Route: 065
     Dates: start: 20101013
  3. FISH OIL [Concomitant]
     Route: 065
     Dates: start: 20110902, end: 20120322
  4. SYMBICORT [Concomitant]
     Indication: HYPERSENSITIVITY
     Dosage: AS NEEDED
     Route: 065
     Dates: start: 20110420
  5. SYMBICORT [Concomitant]
     Indication: ASTHMA
  6. SINGULAIR [Concomitant]
     Indication: HYPERSENSITIVITY
     Route: 065
     Dates: start: 20110420
  7. SINGULAIR [Concomitant]
     Indication: ASTHMA
  8. DEMEROL [Concomitant]
     Indication: PAIN
     Dosage: AS NEEDED
     Route: 065
     Dates: start: 20120316
  9. COMBIVENT [Concomitant]
     Indication: HYPERSENSITIVITY
     Dosage: AS NEEDED
     Route: 065
     Dates: start: 20110420
  10. COMBIVENT [Concomitant]
     Indication: ASTHMA
  11. ARIXTRA [Concomitant]
     Route: 065
     Dates: start: 20120309, end: 20120321
  12. ZOFRAN [Concomitant]
     Indication: NAUSEA
     Route: 065
     Dates: start: 20120323
  13. TRASTUZUMAB EMTANSINE [Suspect]
     Indication: BREAST CANCER METASTATIC
     Dosage: LAST DOSE PRIOR TO SAE: 16/MAR/2012
     Route: 042
     Dates: start: 20111216
  14. PERTUZUMAB [Suspect]
     Indication: BREAST CANCER METASTATIC
     Dosage: LAST DOSE PRIOR TO SAE: 16/MAR/2012
     Route: 042
     Dates: start: 20111216
  15. FONDAPARINUX SODIUM [Suspect]
     Indication: PRODUCT USED FOR UNKNOWN INDICATION
     Route: 058
     Dates: start: 20120309
  16. PACLITAXEL [Suspect]
     Indication: BREAST CANCER METASTATIC
     Dosage: DATE OF LAST DOSE 10/FEB/2012
     Route: 042
     Dates: start: 20111216
  17. SYNTHROID [Concomitant]
     Indication: HYPOTHYROIDISM
     Route: 065
     Dates: start: 2010
  18. KLONOPIN [Concomitant]
     Indication: INSOMNIA
     Route: 065
     Dates: start: 2010
  19. ATIVAN [Concomitant]
     Indication: ANXIETY
     Route: 065
     Dates: start: 20110420
  20. ATIVAN [Concomitant]
     Indication: INSOMNIA

REACTIONS (2)
  - Thrombosis in device [Recovered/Resolved]
  - Epistaxis [Recovered/Resolved]
